FAERS Safety Report 21225317 (Version 1)
Quarter: 2022Q3

REPORT INFORMATION
  Report Type: Spontaneous
  Country: US (occurrence: US)
  Receive Date: 20220817
  Receipt Date: 20220817
  Transmission Date: 20221027
  Serious: Yes (Death, Other)
  Sender: FDA-Public Use
  Company Number: US-BRISTOL-MYERS SQUIBB COMPANY-2022-091486

PATIENT
  Age: 69 Year
  Sex: Female
  Weight: 75.8 kg

DRUGS (12)
  1. REVLIMID [Suspect]
     Active Substance: LENALIDOMIDE
     Indication: Plasma cell myeloma
     Dosage: ONE CAPSULE DAILY FOR 14 DAYS ON AND 7 DAYS OFF
     Route: 048
  2. NAPROXEN [Concomitant]
     Active Substance: NAPROXEN
  3. ACYCLOVIR [Concomitant]
     Active Substance: ACYCLOVIR
  4. AMLODIPINE [Concomitant]
     Active Substance: AMLODIPINE BESYLATE
  5. ASPIRIN [Concomitant]
     Active Substance: ASPIRIN
     Dosage: LOW DOSE ASPIRIN
  6. DEXAMETHASONE [Concomitant]
     Active Substance: DEXAMETHASONE
  7. FAMOTIDINE [Concomitant]
     Active Substance: FAMOTIDINE
  8. MORPHINE [Concomitant]
     Active Substance: MORPHINE
  9. ZOFRAN [Concomitant]
     Active Substance: ONDANSETRON HYDROCHLORIDE
  10. POTASSIUM [Concomitant]
     Active Substance: POTASSIUM
     Dosage: EXTENDED RELEASE TABLET
  11. SIMVASTATIN [Concomitant]
     Active Substance: SIMVASTATIN
  12. HYDROCHLOROTHIAZIDE\TRIAMTERENE [Concomitant]
     Active Substance: HYDROCHLOROTHIAZIDE\TRIAMTERENE
     Dosage: TRIAMTERENE 37.5 / HYDROCHLOROTHIAZIDE 25 MG TABLETS

REACTIONS (2)
  - Death [Fatal]
  - Off label use [Unknown]

NARRATIVE: CASE EVENT DATE: 20220814
